FAERS Safety Report 4547108-8 (Version None)
Quarter: 2005Q1

REPORT INFORMATION
  Report Type: 
  Country: None (occurrence: None)
  Receive Date: 20050105
  Receipt Date: 20041228
  Transmission Date: 20050727
  Serious: Yes (Other)
  Sender: FDA-Public Use
  Company Number: TPA2004A01573

PATIENT
  Age: 58 Year
  Sex: Male
  Weight: 99.7913 kg

DRUGS (5)
  1. ACTOS [Suspect]
     Indication: DIABETES MELLITUS NON-INSULIN-DEPENDENT
     Dosage: 1 NI 1 D, PER ORAL
     Route: 048
     Dates: start: 19990101
  2. GLIPIZIDE (GLPIZIDE) (10 MILLGRAMS) [Concomitant]
  3. NORVASC [Concomitant]
  4. FUROSEMIDE [Concomitant]
  5. ASPIRIN (ACETYLSALICYLIC ACID) (81 MILLIGRAM) [Concomitant]

REACTIONS (3)
  - LUNG NEOPLASM MALIGNANT [None]
  - THROAT CANCER [None]
  - WEIGHT DECREASED [None]
